FAERS Safety Report 9169672 (Version 2)
Quarter: 2013Q1

REPORT INFORMATION
  Report Type: Spontaneous
  Country: JP (occurrence: JP)
  Receive Date: 20130318
  Receipt Date: 20130324
  Transmission Date: 20140127
  Serious: Yes (Other)
  Sender: FDA-Public Use
  Company Number: JP-PFIZER INC-2013086312

PATIENT
  Age: 56 Year
  Sex: Male

DRUGS (2)
  1. CISPLATIN [Suspect]
     Indication: GASTRIC CANCER
     Dosage: 60 MG/M2, CYCLIC ON DAY 8,  EVERY 5 WEEKS
  2. GIMERACIL\OTERACIL\TEGAFUR [Suspect]
     Indication: GASTRIC CANCER
     Dosage: 40 MG/M2, 2X/DAY (ON DAYS 1-21)

REACTIONS (2)
  - Venoocclusive liver disease [Unknown]
  - Thrombocytopenia [Unknown]
